FAERS Safety Report 21681991 (Version 1)
Quarter: 2022Q4

REPORT INFORMATION
  Report Type: Other
  Country: US (occurrence: US)
  Receive Date: 20221205
  Receipt Date: 20221205
  Transmission Date: 20230112
  Serious: Yes (Other)
  Sender: FDA-Public Use
  Company Number: US-PPDUS-2022ST000405

PATIENT
  Sex: Female

DRUGS (7)
  1. ELACESTRANT [Suspect]
     Active Substance: ELACESTRANT
     Indication: Product used for unknown indication
     Dosage: CYCLE 1
     Route: 048
  2. ELACESTRANT [Suspect]
     Active Substance: ELACESTRANT
     Dosage: CYCLE 2
     Route: 048
  3. ELACESTRANT [Suspect]
     Active Substance: ELACESTRANT
     Dosage: CYCLE 3
     Route: 048
  4. ELACESTRANT [Suspect]
     Active Substance: ELACESTRANT
     Dosage: CYCLE 4
     Route: 048
  5. ELACESTRANT [Suspect]
     Active Substance: ELACESTRANT
     Dosage: CYCLE 5
     Route: 048
  6. ELACESTRANT [Suspect]
     Active Substance: ELACESTRANT
     Dosage: CYCLE 6
     Route: 048
  7. ELACESTRANT [Suspect]
     Active Substance: ELACESTRANT
     Dosage: CYCLE 7
     Route: 048

REACTIONS (1)
  - Malignant neoplasm progression [Unknown]
